FAERS Safety Report 20589370 (Version 1)
Quarter: 2022Q1

REPORT INFORMATION
  Report Type: Spontaneous
  Country: GB (occurrence: GB)
  Receive Date: 20220314
  Receipt Date: 20220314
  Transmission Date: 20220423
  Serious: Yes (Life-Threatening, Disabling, Other)
  Sender: FDA-Public Use
  Company Number: GB-MHRA-MED-202202281106576530-10EXP

PATIENT
  Age: 23 Year
  Sex: Female
  Weight: 60 kg

DRUGS (2)
  1. MONTELUKAST [Suspect]
     Active Substance: MONTELUKAST SODIUM
     Indication: Asthma
     Dosage: 1 TABLET A NIGHT;
     Dates: start: 20200320, end: 20200628
  2. BECLOMETHASONE\FORMOTEROL [Concomitant]
     Active Substance: BECLOMETHASONE\FORMOTEROL
     Indication: Adverse drug reaction
     Dosage: UNK
     Dates: start: 20120501, end: 20210901

REACTIONS (20)
  - Choking sensation [Recovered/Resolved with Sequelae]
  - Panic attack [Recovered/Resolved with Sequelae]
  - Choking [Recovered/Resolved with Sequelae]
  - Chest discomfort [Recovered/Resolved with Sequelae]
  - Psychotic disorder [Recovered/Resolved with Sequelae]
  - Dissociation [Recovered/Resolved with Sequelae]
  - Paranoia [Recovered/Resolved with Sequelae]
  - Panic disorder [Recovered/Resolved with Sequelae]
  - Insomnia [Recovering/Resolving]
  - Major depression [Recovering/Resolving]
  - Disturbance in attention [Recovering/Resolving]
  - Depression suicidal [Recovering/Resolving]
  - Anxiety disorder [Recovering/Resolving]
  - Palpitations [Recovering/Resolving]
  - Suicidal ideation [Recovering/Resolving]
  - Condition aggravated [Unknown]
  - Dyspnoea [Recovered/Resolved with Sequelae]
  - Medication error [Unknown]
  - Feeling abnormal [Unknown]
  - Tremor [Unknown]

NARRATIVE: CASE EVENT DATE: 20200329
